FAERS Safety Report 19120544 (Version 1)
Quarter: 2021Q2

REPORT INFORMATION
  Report Type: Spontaneous
  Country: US (occurrence: US)
  Receive Date: 20210409
  Receipt Date: 20210409
  Transmission Date: 20210717
  Serious: Yes (Other)
  Sender: FDA-Public Use
  Company Number: None

PATIENT
  Age: 30 Year
  Sex: Female
  Weight: 74.4 kg

DRUGS (1)
  1. OCRELIZUMAB. [Suspect]
     Active Substance: OCRELIZUMAB
     Indication: MULTIPLE SCLEROSIS
     Route: 041
     Dates: start: 20210107, end: 20210107

REACTIONS (4)
  - Throat irritation [None]
  - Throat tightness [None]
  - Ear pruritus [None]
  - Infusion related reaction [None]

NARRATIVE: CASE EVENT DATE: 20210107
